FAERS Safety Report 7877460-7 (Version None)
Quarter: 2011Q4

REPORT INFORMATION
  Report Type: 
  Country: None (occurrence: None)
  Receive Date: 20111031
  Receipt Date: 20111025
  Transmission Date: 20120403
  Serious: Yes (Other)
  Sender: FDA-Public Use
  Company Number: BR-PFIZER INC-2011260533

PATIENT
  Age: 33 Year
  Sex: Female
  Weight: 85.2 kg

DRUGS (9)
  1. NPH INSULIN [Suspect]
     Dosage: 76 IU BEFORE BREAKFAST, 34 IU BEFORE DINNER
     Dates: start: 20100501
  2. LOSARTAN [Concomitant]
     Dosage: 75 MG, 1X/DAY
  3. LEVOTHYROXINE [Concomitant]
     Dosage: 175 UG, 1X/DAY
  4. METFORMIN HCL [Suspect]
     Dosage: 850 MG, BEFORE LUNCH AND DINNER
     Dates: start: 20100701
  5. NPH INSULIN [Suspect]
     Dosage: 50 IU EARLY AND 15 IU IN THE AFTERNOON
     Dates: start: 19960101
  6. INSULIN [Suspect]
     Dosage: 4 IU BEFORE BREAKFAST,  6 IU BEFORE DINNER
  7. INSULIN [Suspect]
     Dosage: 6 IU BEFORE BREAKFAST AND DINNER
  8. ATORVASTATIN CALCIUM [Suspect]
     Dosage: 40 MG, 1X/DAY
  9. NPH INSULIN [Suspect]
     Dosage: 86 IU EARLY AND 36 IU AT BEDTIME
     Dates: start: 20110501

REACTIONS (4)
  - BLOOD TRIGLYCERIDES INCREASED [None]
  - BLOOD CHOLESTEROL INCREASED [None]
  - BLOOD GLUCOSE INCREASED [None]
  - GLYCOSYLATED HAEMOGLOBIN INCREASED [None]
